FAERS Safety Report 14837856 (Version 1)
Quarter: 2018Q2

REPORT INFORMATION
  Report Type: Spontaneous
  Country: DE (occurrence: DE)
  Receive Date: 20180502
  Receipt Date: 20180502
  Transmission Date: 20180711
  Serious: Yes (Hospitalization)
  Sender: FDA-Public Use
  Company Number: DE-009507513-1804DEU009833

PATIENT
  Age: 80 Year
  Sex: Male

DRUGS (12)
  1. SIMVASTATIN. [Concomitant]
     Active Substance: SIMVASTATIN
     Dosage: 40 MG, 0-0-1-0
     Route: 048
  2. PANTOPRAZOLE [Concomitant]
     Active Substance: PANTOPRAZOLE
     Dosage: 40 MG, 1-0-0-0
  3. REPAGLINIDE. [Concomitant]
     Active Substance: REPAGLINIDE
     Dosage: 0.5 MG, 1-1-1-0
  4. ROTIGOTINE [Suspect]
     Active Substance: ROTIGOTINE
     Dosage: 5 MG, 1-0-0-0, PFLASTER TRANSDERMAL
     Route: 062
  5. NACOM RETARD [Suspect]
     Active Substance: CARBIDOPA\LEVODOPA
     Dosage: 200|50 MG, 0-0-0-1
     Route: 048
  6. STALEVO [Suspect]
     Active Substance: CARBIDOPA\ENTACAPONE\LEVODOPA
     Dosage: 100|25|200 MG, 1-1-1-1
  7. MOLSIDOMINE [Suspect]
     Active Substance: MOLSIDOMINE
     Dosage: 8 MG, 0-0-1-0
  8. CHOLECALCIFEROL [Concomitant]
     Active Substance: CHOLECALCIFEROL
     Dosage: 1-0-0-0
  9. CINNARIZINE (+) DIMENHYDRINATE [Concomitant]
     Dosage: 10|40 MG, 1-0-0-0
  10. RASAGILINE. [Suspect]
     Active Substance: RASAGILINE
     Dosage: 1 MG, 1-0-0-0
  11. MADOPAR [Suspect]
     Active Substance: BENSERAZIDE HYDROCHLORIDE\LEVODOPA
     Dosage: 100|25 MG, 1-0-0-0
  12. ASPIRIN. [Concomitant]
     Active Substance: ASPIRIN
     Dosage: 100 MG, 0-1-0-0

REACTIONS (2)
  - Loss of consciousness [Unknown]
  - Dysarthria [Unknown]
